FAERS Safety Report 12692198 (Version 1)
Quarter: 2016Q3

REPORT INFORMATION
  Report Type: Spontaneous
  Country: GB (occurrence: GB)
  Receive Date: 20160828
  Receipt Date: 20160828
  Transmission Date: 20161109
  Serious: Yes (Hospitalization)
  Sender: FDA-Public Use
  Company Number: GB-DEXPHARM-20161778

PATIENT
  Age: 84 Year
  Sex: Male

DRUGS (16)
  1. ATORVASTATIN [Concomitant]
     Active Substance: ATORVASTATIN
     Dosage: AT NIGHT.
  2. QUININE SULFATE. [Concomitant]
     Active Substance: QUININE SULFATE
     Dosage: AT NIGHT
  3. THEOPHYLLINE [Concomitant]
     Active Substance: THEOPHYLLINE ANHYDROUS
     Dosage: DAILY DOSE: 400 MG MILLGRAM(S) EVERY DAYS
  4. CARBOCISTEINE [Concomitant]
     Active Substance: CARBOCYSTEINE
     Dosage: DAILY DOSE: 2250 MG MILLGRAM(S) EVERY DAYS
  5. HYPROMELLOSE [Concomitant]
     Active Substance: HYPROMELLOSES
     Dosage: DAILY DOSE: 4 DF DOSAGE FORM EVERY DAYS
  6. SALBUTAMOL [Concomitant]
     Active Substance: ALBUTEROL
     Route: 055
  7. OMEPRAZOLE. [Suspect]
     Active Substance: OMEPRAZOLE
     Dosage: EVERY MORNING
     Dates: start: 20160613, end: 20160616
  8. ALFACALCIDOL [Concomitant]
     Active Substance: ALFACALCIDOL
     Indication: VITAMIN D DEFICIENCY
     Dosage: DOSE INCREASED TO 2 MICROGRAM ONCE A DAY ON 17/06/2016
     Dates: start: 20160608, end: 20160620
  9. ASPIRIN. [Concomitant]
     Active Substance: ASPIRIN
     Dosage: EVERY MORNING.
  10. LOSARTAN. [Suspect]
     Active Substance: LOSARTAN
     Dosage: EVERY MORNING.
  11. RANITIDINE. [Concomitant]
     Active Substance: RANITIDINE
     Dosage: DAILY DOSE: 300 MG MILLGRAM(S) EVERY DAYS
  12. LEVOTHYROXINE SODIUM. [Concomitant]
     Active Substance: LEVOTHYROXINE SODIUM
     Dosage: EVERY MORNING
  13. EZETIMIBE. [Concomitant]
     Active Substance: EZETIMIBE
     Dosage: AT NIGHT.
  14. TIOTROPIUM [Concomitant]
     Active Substance: TIOTROPIUM
     Dosage: EVERY MORNING.
     Route: 055
  15. MENTHOL. [Concomitant]
     Active Substance: MENTHOL
     Dosage: DAILY DOSE: 2 DF DOSAGE FORM EVERY DAYS
  16. SERETIDE [Concomitant]
     Active Substance: FLUTICASONE PROPIONATE\SALMETEROL XINAFOATE
     Dosage: DAILY DOSE: 2 DF DOSAGE FORM EVERY DAYS
     Route: 055

REACTIONS (1)
  - Hyponatraemia [Recovered/Resolved]

NARRATIVE: CASE EVENT DATE: 20160613
